FAERS Safety Report 10203085 (Version 7)
Quarter: 2015Q1

REPORT INFORMATION
  Report Type: Spontaneous
  Country: US (occurrence: US)
  Receive Date: 20140529
  Receipt Date: 20150325
  Transmission Date: 20150720
  Serious: Yes (Hospitalization, Other)
  Sender: FDA-Public Use
  Company Number: US-009507513-1405USA013825

PATIENT

DRUGS (7)
  1. PEGASYS [Suspect]
     Active Substance: PEGINTERFERON ALFA-2A
     Dosage: TITRATED TO A MAXIMUM OF 180 MICROGRAM PER WEEK (90 UG, 1 IN 1 WEEK)
     Route: 058
  2. CYCLOSPORINE. [Concomitant]
     Active Substance: CYCLOSPORINE
  3. REBETOL [Suspect]
     Active Substance: RIBAVIRIN
     Indication: HEPATITIS C
     Dosage: WEEK 1-4: 200 MG, TWICE A DAY
     Route: 048
  4. REBETOL [Suspect]
     Active Substance: RIBAVIRIN
     Dosage: TITRATED TO A MAXIMUM OF 1000 MG PER DAY (200 MG, 2 IN 1 D)
     Route: 048
  5. PEGASYS [Suspect]
     Active Substance: PEGINTERFERON ALFA-2A
     Indication: HEPATITIS C
     Dosage: WEEK 1-4: 90 MICROGRAM PER WEEK
     Route: 058
  6. VICTRELIS [Suspect]
     Active Substance: BOCEPREVIR
     Indication: HEPATITIS C
     Dosage: WEEK 5 : 800 MG THREE TIMES DAILY FOR 44 WEEKS OF TRIPLE THERAPY
     Route: 048
  7. MYCOPHENOLATE MOFETIL. [Concomitant]
     Active Substance: MYCOPHENOLATE MOFETIL

REACTIONS (5)
  - Blood creatinine increased [Unknown]
  - Anaemia [Unknown]
  - Drug ineffective [Unknown]
  - Hepatic failure [Unknown]
  - Neutropenia [Unknown]
